FAERS Safety Report 4977436-3 (Version None)
Quarter: 2006Q2

REPORT INFORMATION
  Report Type: 
  Country: None (occurrence: None)
  Receive Date: 20060413
  Receipt Date: 20060330
  Transmission Date: 20061013
  Serious: Yes (Hospitalization)
  Sender: FDA-Public Use
  Company Number: 2006-BP-03630RO

PATIENT
  Age: 27 Year
  Sex: Male

DRUGS (4)
  1. METHADONE HCL [Suspect]
     Indication: DRUG ABUSER
  2. METHADONE HCL [Suspect]
     Indication: PROPHYLAXIS
  3. COCAINE (COCAINE) [Suspect]
  4. HEROIN (DIAMORPHINE) [Suspect]

REACTIONS (6)
  - ASTHENIA [None]
  - BOTULISM [None]
  - BOWEL SOUNDS ABNORMAL [None]
  - DRUG ABUSER [None]
  - ORAL CANDIDIASIS [None]
  - POLYNEUROPATHY [None]
